FAERS Safety Report 6013217-X (Version None)
Quarter: 2008Q4

REPORT INFORMATION
  Report Type: 
  Country: None (occurrence: None)
  Receive Date: 20081219
  Receipt Date: 20081209
  Transmission Date: 20090506
  Serious: Yes (Death)
  Sender: FDA-Public Use
  Company Number: PHHY2008JP26307

PATIENT
  Sex: Female
  Weight: 35 kg

DRUGS (6)
  1. DIOVAN [Suspect]
     Dosage: 40 MG DAILY
     Route: 048
     Dates: start: 20070810, end: 20071013
  2. DIOVAN [Suspect]
     Dosage: 20 MG DAILY
     Route: 048
     Dates: start: 20071013, end: 20080220
  3. MYSLEE [Concomitant]
     Dosage: 1 DF
     Route: 048
     Dates: start: 20070919, end: 20080220
  4. UBRETID [Concomitant]
     Dosage: 1 DF
     Route: 048
     Dates: start: 20070919, end: 20080220
  5. RIZE [Concomitant]
     Dosage: 2 DF
     Route: 048
     Dates: start: 20071001, end: 20080220
  6. DORAL [Concomitant]
     Dosage: 1 DF
     Route: 048
     Dates: start: 20071009, end: 20080220

REACTIONS (1)
  - COMPLETED SUICIDE [None]
